FAERS Safety Report 9267392 (Version 1)
Quarter: 2013Q2

REPORT INFORMATION
  Report Type: Spontaneous
  Country: US (occurrence: US)
  Receive Date: 20130502
  Receipt Date: 20130502
  Transmission Date: 20140414
  Serious: No
  Sender: FDA-Public Use
  Company Number: US-BAYER-2013-054328

PATIENT
  Age: 61 Year
  Sex: Female

DRUGS (6)
  1. ALEVE CAPLET [Suspect]
     Dosage: 1 DF, QD
     Route: 048
     Dates: start: 20130421
  2. ALEVE LIQUID GELS [Suspect]
     Dosage: 1 DF, BID
     Route: 048
     Dates: start: 201211, end: 20130421
  3. VICODIN [Concomitant]
  4. CALCIUM [Concomitant]
  5. VITAMIN C [Concomitant]
  6. LISINOPRIL [Concomitant]

REACTIONS (2)
  - Insomnia [Recovered/Resolved]
  - Incorrect drug administration duration [None]
